FAERS Safety Report 13813479 (Version 4)
Quarter: 2019Q1

REPORT INFORMATION
  Report Type: Spontaneous
  Country: DE (occurrence: DE)
  Receive Date: 20170730
  Receipt Date: 20190326
  Transmission Date: 20190417
  Serious: Yes (Other)
  Sender: FDA-Public Use
  Company Number: PHHY2017DE055137

PATIENT
  Age: 69 Year
  Sex: Female
  Weight: 53 kg

DRUGS (5)
  1. JADENU [Suspect]
     Active Substance: DEFERASIROX
     Indication: PRODUCT USED FOR UNKNOWN INDICATION
     Dosage: 90 MG, QD
     Route: 065
     Dates: start: 20170212
  2. JADENU [Suspect]
     Active Substance: DEFERASIROX
     Dosage: 540 MG, QD
     Route: 065
     Dates: start: 20170426
  3. EXJADE [Suspect]
     Active Substance: DEFERASIROX
     Indication: PRODUCT USED FOR UNKNOWN INDICATION
     Dosage: 13.58 MG/KG, QD (360 MG, BID)
     Route: 065
     Dates: start: 201902
  4. PANTOPRAZOLE [Concomitant]
     Active Substance: PANTOPRAZOLE
     Indication: PRODUCT USED FOR UNKNOWN INDICATION
     Dosage: UNK
     Route: 065
  5. JADENU [Suspect]
     Active Substance: DEFERASIROX
     Dosage: 270 MG, QD
     Route: 065
     Dates: start: 201704, end: 20170426

REACTIONS (7)
  - Anaemia [Unknown]
  - Feeling abnormal [Recovered/Resolved]
  - Feeding disorder [Recovering/Resolving]
  - Blood iron abnormal [Unknown]
  - Oral disorder [Recovering/Resolving]
  - Atrial fibrillation [Unknown]
  - Syncope [Recovered/Resolved]

NARRATIVE: CASE EVENT DATE: 20170331
